FAERS Safety Report 7763243-5 (Version None)
Quarter: 2011Q3

REPORT INFORMATION
  Report Type: 
  Country: None (occurrence: None)
  Receive Date: 20110920
  Receipt Date: 20110915
  Transmission Date: 20111222
  Serious: Yes (Other)
  Sender: FDA-Public Use
  Company Number: PHHY2011CA74180

PATIENT
  Sex: Female

DRUGS (7)
  1. ZOMETA [Suspect]
     Indication: METASTASES TO BONE
     Dosage: 04 MG EVERY 04 WEEKS
     Dates: start: 20110201
  2. HYDROMORPH [Concomitant]
  3. FISH OIL [Concomitant]
  4. RADIATION THERAPY [Concomitant]
     Dates: start: 20110531
  5. ZOMETA [Suspect]
     Dosage: 4 MG, EVERY 4 WEEKS
     Dates: start: 20110603
  6. ZOMETA [Suspect]
     Indication: BREAST CANCER
     Dosage: 04 MG EVERY 04 WEEKS
     Dates: start: 20110501
  7. MULTI-VITAMINS [Concomitant]

REACTIONS (5)
  - HYPERSOMNIA [None]
  - FEELING DRUNK [None]
  - SPEECH DISORDER [None]
  - HYPOAESTHESIA [None]
  - FATIGUE [None]
